FAERS Safety Report 8133793-0 (Version None)
Quarter: 2012Q1

REPORT INFORMATION
  Report Type: 
  Country: None (occurrence: None)
  Receive Date: 20120213
  Receipt Date: 20120213
  Transmission Date: 20120608
  Serious: No
  Sender: FDA-Public Use
  Company Number: None

PATIENT
  Age: 75 Year
  Sex: Female
  Weight: 62.595 kg

DRUGS (1)
  1. CULTURELLE PROBIOTIC [Suspect]
     Route: 048
     Dates: start: 20120206, end: 20120210

REACTIONS (1)
  - ABDOMINAL PAIN UPPER [None]
